FAERS Safety Report 7413613-X (Version None)
Quarter: 2011Q2

REPORT INFORMATION
  Report Type: 
  Country: None (occurrence: None)
  Receive Date: 20110413
  Receipt Date: 20110411
  Transmission Date: 20111010
  Serious: Yes (Hospitalization)
  Sender: FDA-Public Use
  Company Number: US-GENZYME-FABR-1001812

PATIENT
  Sex: Male
  Weight: 50 kg

DRUGS (7)
  1. FABRAZYME [Suspect]
     Indication: FABRY'S DISEASE
     Dosage: 25 MG, Q3W
     Route: 042
     Dates: start: 20100301, end: 20100623
  2. FABRAZYME [Suspect]
     Dosage: 25 MG, Q4W
     Route: 042
     Dates: start: 20091020, end: 20100301
  3. IBUPROFEN [Concomitant]
     Indication: PAIN
     Dosage: UNK
  4. FABRAZYME [Suspect]
     Dosage: 25 MG, Q2W
     Route: 042
     Dates: start: 20100301, end: 20100301
  5. FABRAZYME [Suspect]
     Dosage: 0.5 MG/KG, Q2W
     Route: 042
     Dates: start: 20090714, end: 20091019
  6. IBUPROFEN [Concomitant]
     Indication: INFLAMMATION
  7. FABRAZYME [Suspect]
     Dosage: 1 MG/KG, Q2W
     Route: 042
     Dates: start: 20040203, end: 20090713

REACTIONS (6)
  - LETHARGY [None]
  - MYALGIA [None]
  - VOMITING [None]
  - LYMPHADENOPATHY [None]
  - ABDOMINAL PAIN [None]
  - WEIGHT DECREASED [None]
